APPROVED DRUG PRODUCT: TROSPIUM CHLORIDE
Active Ingredient: TROSPIUM CHLORIDE
Strength: 60MG
Dosage Form/Route: CAPSULE, EXTENDED RELEASE;ORAL
Application: A091635 | Product #001
Applicant: UPSHER SMITH LABORATORIES LLC
Approved: Apr 29, 2015 | RLD: No | RS: No | Type: DISCN